FAERS Safety Report 6752723-7 (Version None)
Quarter: 2010Q2

REPORT INFORMATION
  Report Type: 
  Country: None (occurrence: None)
  Receive Date: 20100528
  Receipt Date: 20100422
  Transmission Date: 20101027
  Serious: Yes (Hospitalization)
  Sender: FDA-Public Use
  Company Number: 1-17293678

PATIENT
  Age: 56 Year
  Sex: Male

DRUGS (6)
  1. QUININE (MANUFACTURER UNKNOWN) [Suspect]
     Indication: MUSCLE SPASMS
     Dosage: ORAL
     Route: 048
     Dates: start: 20040723
  2. PREDNISONE [Suspect]
     Indication: IDIOPATHIC THROMBOCYTOPENIC PURPURA
     Dosage: ORAL
     Route: 048
     Dates: start: 20040801
  3. ORAMORPH (MORPHINE) [Concomitant]
  4. DOXAZOSIN MESYLATE [Concomitant]
  5. ATENOLOL [Concomitant]
  6. VOLTAREN [Concomitant]

REACTIONS (3)
  - HYPERGLYCAEMIA [None]
  - IDIOPATHIC THROMBOCYTOPENIC PURPURA [None]
  - UNEVALUABLE EVENT [None]
